FAERS Safety Report 16005428 (Version 1)
Quarter: 2019Q1

REPORT INFORMATION
  Report Type: Report from Study
  Country: MA (occurrence: TN)
  Receive Date: 20190226
  Receipt Date: 20190226
  Transmission Date: 20190418
  Serious: Yes (Death, Hospitalization, Other)
  Sender: FDA-Public Use
  Company Number: MA-SANIK-2019SA051693AA

PATIENT
  Age: 60 Year
  Sex: Male

DRUGS (6)
  1. INSULATARD HM [Concomitant]
     Active Substance: INSULIN HUMAN
  2. CONCOR [Concomitant]
     Active Substance: BISOPROLOL FUMARATE
  3. ASPEGIC [ACETYLSALICYLIC ACID] [Concomitant]
  4. LOPRIL [CAPTOPRIL] [Concomitant]
  5. CLOPIDOGREL BISULFATE. [Suspect]
     Active Substance: CLOPIDOGREL BISULFATE
     Indication: CORONARY ARTERY STENT REMOVAL
     Dosage: 75 MG, (ONE TABLET), QD
     Route: 048
     Dates: start: 20180413, end: 20190217
  6. ATOR [Concomitant]
     Active Substance: ATORVASTATIN CALCIUM

REACTIONS (2)
  - Cardiac arrest [Fatal]
  - Angioplasty [Unknown]

NARRATIVE: CASE EVENT DATE: 20190217
